FAERS Safety Report 7224238-3 (Version None)
Quarter: 2011Q1

REPORT INFORMATION
  Report Type: 
  Country: None (occurrence: None)
  Receive Date: 20110113
  Receipt Date: 20101231
  Transmission Date: 20110831
  Serious: Yes (Other)
  Sender: FDA-Public Use
  Company Number: FR-ELI_LILLY_AND_COMPANY-FR201012006704

PATIENT
  Age: 75 Year
  Sex: Male

DRUGS (7)
  1. LAMICTAL [Concomitant]
     Dosage: 100 MG, 3/D
     Route: 048
  2. NORSET [Concomitant]
     Route: 048
  3. IMOVANE [Concomitant]
     Route: 048
  4. ZYPREXA [Suspect]
     Dosage: 5 MG, DAILY (1/D)
     Route: 048
     Dates: start: 20070101
  5. ZYPREXA [Suspect]
     Dosage: 5 MG, DAILY (1/D)
     Route: 048
  6. SECTRAL [Concomitant]
     Dosage: 200 MG, DAILY (1/D)
     Route: 048
  7. VENLAFAXINE [Concomitant]
     Route: 048

REACTIONS (3)
  - LOSS OF CONSCIOUSNESS [None]
  - DYSPHAGIA [None]
  - URINARY INCONTINENCE [None]
